FAERS Safety Report 13805334 (Version 2)
Quarter: 2018Q1

REPORT INFORMATION
  Report Type: Spontaneous
  Country: US (occurrence: US)
  Receive Date: 20170728
  Receipt Date: 20180124
  Transmission Date: 20180508
  Serious: No
  Sender: FDA-Public Use
  Company Number: US-AMGEN-USASP2017066407

PATIENT
  Age: 61 Year
  Sex: Female

DRUGS (1)
  1. REPATHA [Suspect]
     Active Substance: EVOLOCUMAB
     Indication: BLOOD CHOLESTEROL INCREASED
     Dosage: 420 MG, QMO
     Route: 065
     Dates: start: 201703

REACTIONS (4)
  - Injection site urticaria [Unknown]
  - Underdose [Unknown]
  - Accidental exposure to product [Unknown]
  - Wrong technique in product usage process [Unknown]

NARRATIVE: CASE EVENT DATE: 20170428
